FAERS Safety Report 21330042 (Version 5)
Quarter: 2025Q2

REPORT INFORMATION
  Report Type: Spontaneous
  Country: US (occurrence: US)
  Receive Date: 20220913
  Receipt Date: 20250407
  Transmission Date: 20250716
  Serious: Yes (Other)
  Sender: PFIZER
  Company Number: US-PFIZER INC-PV202200062188

PATIENT
  Age: 45 Year
  Sex: Female

DRUGS (3)
  1. LORBRENA [Suspect]
     Active Substance: LORLATINIB
     Indication: Lung neoplasm malignant
     Dosage: 100 MG, DAILY
     Route: 048
  2. LORBRENA [Suspect]
     Active Substance: LORLATINIB
     Dosage: 1 TABLET EVERY OTHER DAY
  3. LORBRENA [Suspect]
     Active Substance: LORLATINIB
     Dosage: TAKE HALF OF 100MG TABLET DAILY

REACTIONS (2)
  - Lung carcinoma cell type unspecified recurrent [Unknown]
  - Off label use [Unknown]
